FAERS Safety Report 12492997 (Version 1)
Quarter: 2016Q2

REPORT INFORMATION
  Report Type: Spontaneous
  Country: CA (occurrence: CA)
  Receive Date: 20160623
  Receipt Date: 20160623
  Transmission Date: 20160815
  Serious: Yes (Hospitalization)
  Sender: FDA-Public Use
  Company Number: CA-HQ SPECIALTY-CA-2016INT000401

PATIENT
  Age: 52 Year
  Sex: Female

DRUGS (7)
  1. METHOTREXATE SODIUM. [Suspect]
     Active Substance: METHOTREXATE SODIUM
     Dosage: 1 IN 2 W
  2. XELJANZ [Suspect]
     Active Substance: TOFACITINIB CITRATE
     Dosage: 5 MG (5 MG, 1 IN 1 D)
     Route: 048
  3. SULFASALAZINE. [Concomitant]
     Active Substance: SULFASALAZINE
     Indication: RHEUMATOID ARTHRITIS
     Dosage: UNK
  4. HYDROXYCHLOROQUINE [Concomitant]
     Active Substance: HYDROXYCHLOROQUINE
     Indication: RHEUMATOID ARTHRITIS
     Dosage: UNK
  5. METHOTREXATE SODIUM. [Suspect]
     Active Substance: METHOTREXATE SODIUM
     Indication: RHEUMATOID ARTHRITIS
     Dosage: 1 IN 1 W
  6. XELJANZ [Suspect]
     Active Substance: TOFACITINIB CITRATE
     Indication: RHEUMATOID ARTHRITIS
     Dosage: 10 MG (5 MG, 2 IN 1 D)
     Route: 048
     Dates: start: 20151203
  7. XELJANZ [Suspect]
     Active Substance: TOFACITINIB CITRATE
     Dosage: TOOK 5MG TWICE A DAY AND NEXT FEW DAYS AND THEN WON^T TAKE ANY, THEN COUPLE DAYS WOULD TAKE 5MG DAIL
     Route: 048
     Dates: end: 20160324

REACTIONS (9)
  - Abdominal pain [Recovering/Resolving]
  - Impaired gastric emptying [Unknown]
  - Weight decreased [Unknown]
  - Oropharyngeal pain [Unknown]
  - Abdominal rigidity [Recovering/Resolving]
  - Abdominal distension [Recovering/Resolving]
  - Hot flush [Recovered/Resolved]
  - Urinary tract infection [Unknown]
  - Gastric disorder [Not Recovered/Not Resolved]

NARRATIVE: CASE EVENT DATE: 201512
